FAERS Safety Report 24024909 (Version 5)
Quarter: 2024Q4

REPORT INFORMATION
  Report Type: Report from Study
  Country: US (occurrence: US)
  Receive Date: 20240628
  Receipt Date: 20241217
  Transmission Date: 20250115
  Serious: Yes (Hospitalization)
  Sender: ABBVIE
  Company Number: US-ABBVIE-5672276

PATIENT
  Age: 72 Year
  Sex: Male

DRUGS (3)
  1. SKYRIZI [Suspect]
     Active Substance: RISANKIZUMAB-RZAA
     Indication: Psoriasis
     Dosage: LAST ADMIN DATE: 2020
     Route: 058
     Dates: start: 20200305
  2. SKYRIZI [Suspect]
     Active Substance: RISANKIZUMAB-RZAA
     Route: 058
     Dates: start: 20200608
  3. SKYRIZI [Suspect]
     Active Substance: RISANKIZUMAB-RZAA
     Dosage: LAST ADMIN DATE: 2020
     Route: 058
     Dates: start: 20200204

REACTIONS (5)
  - Cardiac failure congestive [Unknown]
  - Pain in extremity [Unknown]
  - Emphysema [Unknown]
  - Diabetes mellitus [Recovering/Resolving]
  - Lymphoedema [Unknown]

NARRATIVE: CASE EVENT DATE: 20240101
